FAERS Safety Report 13024004 (Version 1)
Quarter: 2016Q4

REPORT INFORMATION
  Report Type: Spontaneous
  Country: IT (occurrence: IT)
  Receive Date: 20161213
  Receipt Date: 20161213
  Transmission Date: 20170207
  Serious: Yes (Life-Threatening, Other)
  Sender: FDA-Public Use
  Company Number: IT-PFIZER INC-2016532570

PATIENT
  Age: 54 Year
  Sex: Male

DRUGS (5)
  1. EMTRICITABINE W/TENOFOVIR [Interacting]
     Active Substance: EMTRICITABINE\TENOFOVIR DISOPROXIL
     Indication: ANTIRETROVIRAL THERAPY
     Dosage: UNK
  2. AZITHROMYCIN ANHYDROUS. [Suspect]
     Active Substance: AZITHROMYCIN ANHYDROUS
     Indication: OPPORTUNISTIC INFECTION PROPHYLAXIS
     Dosage: UNK
  3. INDOMETHACIN. [Interacting]
     Active Substance: INDOMETHACIN
     Indication: PERICARDITIS
     Dosage: 50 MG, 3X/DAY
  4. COTRIMOXAZOLE [Interacting]
     Active Substance: SULFAMETHOXAZOLE\TRIMETHOPRIM
     Indication: OPPORTUNISTIC INFECTION PROPHYLAXIS
     Dosage: UNK
  5. DARUNAVIR/RITONAVIR [Concomitant]
     Indication: ANTIRETROVIRAL THERAPY
     Dosage: [DARUNAVIR 800MG]/[RITONAVIR 100 MG], 1X/DAY

REACTIONS (3)
  - Drug interaction [Not Recovered/Not Resolved]
  - Acute kidney injury [Not Recovered/Not Resolved]
  - Hepatitis cholestatic [Recovering/Resolving]
